FAERS Safety Report 16771223 (Version 1)
Quarter: 2019Q3

REPORT INFORMATION
  Report Type: Spontaneous
  Country: SE (occurrence: SE)
  Receive Date: 20190904
  Receipt Date: 20190904
  Transmission Date: 20191005
  Serious: Yes (Hospitalization)
  Sender: FDA-Public Use
  Company Number: SE-TEVA-2019-SE-1100918

PATIENT
  Age: 76 Year
  Sex: Male

DRUGS (3)
  1. SALURES [Concomitant]
     Active Substance: BENDROFLUMETHIAZIDE
     Dates: end: 201906
  2. OXYCODONE [Suspect]
     Active Substance: OXYCODONE
     Indication: ABDOMINAL PAIN
     Dosage: 3 MILLIGRAM
     Dates: start: 20190615, end: 20190615
  3. BISOPROLOL [Concomitant]
     Active Substance: BISOPROLOL

REACTIONS (1)
  - Bradycardia [Recovering/Resolving]

NARRATIVE: CASE EVENT DATE: 20190615
